FAERS Safety Report 13241877 (Version 1)
Quarter: 2017Q1

REPORT INFORMATION
  Report Type: Spontaneous
  Country: US (occurrence: US)
  Receive Date: 20170216
  Receipt Date: 20170216
  Transmission Date: 20170428
  Serious: No
  Sender: FDA-Public Use
  Company Number: US-RELYPSA-RLY2016004696

PATIENT
  Sex: Male

DRUGS (12)
  1. VELTASSA [Suspect]
     Active Substance: PATIROMER
     Indication: HYPERKALAEMIA
     Dosage: 8.4 G, QD
     Route: 048
  2. NIFEDICAL XL [Concomitant]
     Active Substance: NIFEDIPINE
  3. ISOSORBIDE. [Concomitant]
     Active Substance: ISOSORBIDE
  4. ONDANSETRON [Concomitant]
     Active Substance: ONDANSETRON
  5. HYDRALAZINE [Concomitant]
     Active Substance: HYDRALAZINE HYDROCHLORIDE
  6. CITALOPRAM [Concomitant]
     Active Substance: CITALOPRAM HYDROBROMIDE
  7. CARVEDILOL. [Concomitant]
     Active Substance: CARVEDILOL
  8. LOSARTAN. [Concomitant]
     Active Substance: LOSARTAN
  9. CLONIDINE. [Concomitant]
     Active Substance: CLONIDINE
  10. TRAZODONE [Concomitant]
     Active Substance: TRAZODONE HYDROCHLORIDE
  11. BENZONATATE. [Concomitant]
     Active Substance: BENZONATATE
  12. MINOXIDIL. [Concomitant]
     Active Substance: MINOXIDIL

REACTIONS (3)
  - Chills [Not Recovered/Not Resolved]
  - Vomiting [Not Recovered/Not Resolved]
  - Decreased appetite [Not Recovered/Not Resolved]

NARRATIVE: CASE EVENT DATE: 2016
